FAERS Safety Report 9986716 (Version 1)
Quarter: 2014Q1

REPORT INFORMATION
  Report Type: Report from Study
  Country: US (occurrence: US)
  Receive Date: 20140307
  Receipt Date: 20140307
  Transmission Date: 20141002
  Serious: No
  Sender: FDA-Public Use
  Company Number: US-ABBVIE-13P-163-1074806-00

PATIENT
  Age: 44 Year
  Sex: Female

DRUGS (16)
  1. HUMIRA [Suspect]
     Indication: RHEUMATOID ARTHRITIS
     Dates: start: 20130321
  2. CARBETALOL [Concomitant]
     Indication: HYPERTENSION
  3. AMBIEN [Concomitant]
     Indication: INSOMNIA
     Dosage: 1 DAY AS NEEDED
  4. BACLOFEN [Concomitant]
     Indication: PAIN
  5. FLOVENT [Concomitant]
     Indication: ASTHMA
     Dosage: AS NEEDED
  6. FLUTICASONE [Concomitant]
     Indication: ASTHMA
     Route: 045
  7. GABAPENTIN [Concomitant]
     Indication: MUSCLE RELAXANT THERAPY
  8. LOVASTATIN [Concomitant]
     Indication: BLOOD CHOLESTEROL
  9. OMEPRAZOLE [Concomitant]
     Indication: PRODUCT USED FOR UNKNOWN INDICATION
  10. SUMATRIPAN [Concomitant]
     Indication: MIGRAINE
  11. ALLOPURINOL [Concomitant]
     Indication: GOUT
  12. TETRALIN [Concomitant]
     Indication: DEPRESSION
  13. HCTZ [Concomitant]
     Indication: DIURETIC THERAPY
  14. QVAR [Concomitant]
     Indication: ASTHMA
     Dosage: 80 MCG 2 PUFFS 2 X A DAY
  15. PROAIR [Concomitant]
     Indication: ASTHMA
  16. MOTRIN [Concomitant]
     Indication: PAIN

REACTIONS (5)
  - Cough [Recovering/Resolving]
  - Hyperhidrosis [Recovering/Resolving]
  - Respiratory tract congestion [Recovering/Resolving]
  - Dizziness [Recovering/Resolving]
  - Fatigue [Recovering/Resolving]
